FAERS Safety Report 6815457-6 (Version None)
Quarter: 2010Q3

REPORT INFORMATION
  Report Type: 
  Country: None (occurrence: None)
  Receive Date: 20100702
  Receipt Date: 20100701
  Transmission Date: 20110219
  Serious: Yes (Other)
  Sender: FDA-Public Use
  Company Number: US-CEPHALON-2010003567

PATIENT
  Sex: Male
  Weight: 107 kg

DRUGS (8)
  1. TREANDA [Suspect]
     Indication: DIFFUSE LARGE B-CELL LYMPHOMA
     Route: 042
     Dates: start: 20100401
  2. RITUXAN [Concomitant]
     Dates: start: 20100101, end: 20100101
  3. SYMORT [Concomitant]
  4. XANAX [Concomitant]
  5. GUAIFENASIN AND CODEINE [Concomitant]
  6. PERCOCET [Concomitant]
  7. WARFARIN [Concomitant]
  8. ADVAIR DISKUS 100/50 [Concomitant]

REACTIONS (1)
  - LUNG CARCINOMA CELL TYPE UNSPECIFIED STAGE II [None]
